FAERS Safety Report 9356301 (Version 2)
Quarter: 2013Q3

REPORT INFORMATION
  Report Type: Spontaneous
  Country: DE (occurrence: JP)
  Receive Date: 20130619
  Receipt Date: 20130719
  Transmission Date: 20140515
  Serious: Yes (Life-Threatening, Hospitalization)
  Sender: FDA-Public Use
  Company Number: JP-BRACCO-007157

PATIENT
  Age: 64 Year
  Sex: Male
  Weight: 73 kg

DRUGS (4)
  1. IOPAMIRON [Suspect]
     Indication: COMPUTERISED TOMOGRAM CORONARY ARTERY
     Dosage: 31110A LOT NUMBER FROM INITIAL REPORT WAS DELETED FROM FOLLOW-UP
     Route: 042
     Dates: start: 20130610, end: 20130610
  2. LASIX [Concomitant]
     Dates: start: 20121026
  3. BAYASPIRIN [Concomitant]
     Dosage: GASTRO-RESISTANT TABLET
     Dates: start: 20121026
  4. SIGMART [Concomitant]
     Dates: start: 20121026

REACTIONS (1)
  - Anaphylactic shock [Recovered/Resolved]
